FAERS Safety Report 6471343-5 (Version None)
Quarter: 2009Q4

REPORT INFORMATION
  Report Type: 
  Country: None (occurrence: None)
  Receive Date: 20091203
  Receipt Date: 20080219
  Transmission Date: 20100525
  Serious: Yes (Other)
  Sender: FDA-Public Use
  Company Number: US-ELI_LILLY_AND_COMPANY-US200802004193

PATIENT
  Age: 58 Year
  Sex: Male
  Weight: 115.19 kg

DRUGS (10)
  1. ZYPREXA [Suspect]
     Indication: SCHIZOPHRENIA, PARANOID TYPE
     Dosage: 15 MG, DAILY (1/D)
  2. CLORAZEPATE DIPOTASSIUM [Concomitant]
     Indication: SMOKING CESSATION THERAPY
  3. EFFEXOR XR [Concomitant]
  4. ZETIA [Concomitant]
     Indication: COLITIS
     Dosage: 10 MG, UNK
  5. LASIX [Concomitant]
  6. POTASSIUM CHLORIDE [Concomitant]
  7. LOVAZA [Concomitant]
  8. MULTI-VITAMIN [Concomitant]
  9. VITAMIN E [Concomitant]
  10. ASCORBIC ACID [Concomitant]

REACTIONS (9)
  - DYSPNOEA [None]
  - EXOSTOSIS [None]
  - HAEMORRHAGE [None]
  - HYPOHIDROSIS [None]
  - REFLUX OESOPHAGITIS [None]
  - SCOLIOSIS [None]
  - SLEEP APNOEA SYNDROME [None]
  - TEMPERATURE INTOLERANCE [None]
  - WEIGHT INCREASED [None]
